FAERS Safety Report 9279153 (Version 2)
Quarter: 2013Q3

REPORT INFORMATION
  Report Type: Report from Study
  Country: DE (occurrence: DE)
  Receive Date: 20130508
  Receipt Date: 20130814
  Transmission Date: 20140515
  Serious: Yes (Hospitalization, Other)
  Sender: FDA-Public Use
  Company Number: DE-ABBOTT-13P-062-1085701-00

PATIENT
  Age: 27 Year
  Sex: Female
  Weight: 60 kg

DRUGS (4)
  1. HUMIRA [Suspect]
     Indication: CROHN^S DISEASE
     Dosage: FIRST DOSE 160 MG
     Route: 058
     Dates: start: 20111014, end: 20111014
  2. HUMIRA [Suspect]
     Dosage: WEEK TWO 80 MG
     Route: 058
  3. HUMIRA [Suspect]
     Route: 058
     Dates: end: 20130110
  4. PREDNISOLON [Concomitant]
     Indication: CROHN^S DISEASE
     Dosage: 10 MG PER DAY

REACTIONS (6)
  - Epilepsy [Recovered/Resolved]
  - Partial seizures [Recovered/Resolved]
  - Clonic convulsion [Recovered/Resolved]
  - Grand mal convulsion [Recovered/Resolved]
  - Cortical dysplasia [Recovered/Resolved]
  - Panic attack [Recovered/Resolved]
